FAERS Safety Report 8384586-0 (Version None)
Quarter: 2012Q2

REPORT INFORMATION
  Report Type: 
  Country: None (occurrence: None)
  Receive Date: 20120524
  Receipt Date: 20120516
  Transmission Date: 20120825
  Serious: Yes (Hospitalization)
  Sender: FDA-Public Use
  Company Number: GB-JNJFOC-20120516362

PATIENT
  Sex: Female
  Weight: 55.9 kg

DRUGS (7)
  1. VESICARE [Concomitant]
     Indication: PRODUCT USED FOR UNKNOWN INDICATION
     Route: 065
     Dates: start: 20110919
  2. STELARA [Suspect]
     Indication: PSORIASIS
     Route: 058
     Dates: start: 20110517
  3. OXYBUTYNIN [Concomitant]
     Indication: PRODUCT USED FOR UNKNOWN INDICATION
     Route: 065
     Dates: start: 20110419
  4. ORAMORPH SR [Concomitant]
     Indication: PRODUCT USED FOR UNKNOWN INDICATION
     Route: 065
     Dates: start: 20110419
  5. ELLESTE-SOLO [Concomitant]
     Indication: PRODUCT USED FOR UNKNOWN INDICATION
     Route: 065
     Dates: start: 20110419
  6. MORPHINE [Concomitant]
     Indication: PRODUCT USED FOR UNKNOWN INDICATION
     Dates: start: 20110419
  7. CEPHALEXIN [Concomitant]
     Indication: PRODUCT USED FOR UNKNOWN INDICATION
     Route: 065
     Dates: start: 20110419

REACTIONS (1)
  - CYSTITIS [None]
